FAERS Safety Report 8420820 (Version 4)
Quarter: 2017Q4

REPORT INFORMATION
  Report Type: Spontaneous
  Country: US (occurrence: US)
  Receive Date: 20120210
  Receipt Date: 20171023
  Transmission Date: 20180321
  Serious: Yes (Disabling)
  Sender: FDA-Public Use
  Company Number: 2012P1003740

PATIENT
  Age: 77 Year
  Sex: Male
  Weight: 88.45 kg

DRUGS (4)
  1. EPINEPHRINE INJECTION, USP 1 MG/ML [Suspect]
     Active Substance: EPINEPHRINE
     Indication: PUPIL DILATION PROCEDURE
     Route: 031
     Dates: start: 20111221, end: 20111221
  2. BETADINE [Concomitant]
     Active Substance: POVIDONE-IODINE
     Indication: PRODUCT USED FOR UNKNOWN INDICATION
     Route: 065
  3. CEFUROXIME. [Suspect]
     Active Substance: CEFUROXIME
     Indication: INFECTION PROPHYLAXIS
     Route: 031
     Dates: start: 20111221, end: 20111221
  4. BSS [Suspect]
     Active Substance: CALCIUM CHLORIDE\MAGNESIUM CHLORIDE\POTASSIUM CHLORIDE\SODIUM ACETATE\SODIUM CHLORIDE\SODIUM CITRATE
     Indication: PUPIL DILATION PROCEDURE
     Route: 031
     Dates: start: 20111221, end: 20111221

REACTIONS (5)
  - Vitreous opacities [Not Recovered/Not Resolved]
  - Streptococcal infection [Recovered/Resolved with Sequelae]
  - Off label use [Recovered/Resolved]
  - Endophthalmitis [Recovered/Resolved with Sequelae]
  - Blindness [Recovering/Resolving]

NARRATIVE: CASE EVENT DATE: 20111221
